FAERS Safety Report 7711322-0 (Version None)
Quarter: 2011Q3

REPORT INFORMATION
  Report Type: 
  Country: None (occurrence: None)
  Receive Date: 20110826
  Receipt Date: 20110816
  Transmission Date: 20111222
  Serious: Yes (Hospitalization)
  Sender: FDA-Public Use
  Company Number: DE-RANBAXY-2009RR-22349

PATIENT
  Age: 54 Year
  Sex: Male
  Weight: 78 kg

DRUGS (13)
  1. FUROSEMIDE [Suspect]
     Indication: RENAL IMPAIRMENT
     Dosage: 40 MG, QD
     Route: 048
     Dates: start: 20080301, end: 20080821
  2. PREGABALIN [Concomitant]
     Indication: POLYNEUROPATHY ALCOHOLIC
     Dosage: 50 MG, TID
     Route: 048
  3. SPIRIVA [Concomitant]
     Dosage: 18 UG, QD
     Route: 055
  4. HYDROCHLOROTHIAZIDE [Suspect]
     Indication: HYPERTENSION
     Dosage: 25 MG, QD
     Route: 048
     Dates: start: 20080301, end: 20080821
  5. BISOPROLOL FUMARATE [Suspect]
     Indication: CORONARY ARTERY DISEASE
     Dosage: 5 MG, BID
     Route: 048
     Dates: start: 19900101
  6. RAMIPRIL [Suspect]
     Indication: HYPERTENSION
     Dosage: 5 MG, QD
     Route: 048
     Dates: start: 19900101
  7. FALITHROM HEXAL [Concomitant]
     Indication: THROMBOSIS PROPHYLAXIS
     Dosage: 3 MG, UNK
     Route: 048
     Dates: start: 20070401
  8. PANTOPRAZOLE [Concomitant]
     Indication: PROPHYLAXIS AGAINST GASTROINTESTINAL ULCER
     Dosage: 40 MG, QD
     Route: 048
     Dates: start: 20070401
  9. SPIRIVA [Concomitant]
     Indication: CHRONIC OBSTRUCTIVE PULMONARY DISEASE
     Dosage: 1 DF, QD
     Route: 055
  10. SIMAVASTATIN [Concomitant]
     Indication: CORONARY ARTERY DISEASE
     Dosage: 20 MG, QD
     Route: 048
     Dates: start: 19900101
  11. BEROTEC [Concomitant]
     Indication: CHRONIC OBSTRUCTIVE PULMONARY DISEASE
     Dosage: 100 UG, UNK
     Route: 055
  12. NEURONTIN [Concomitant]
     Indication: POLYNEUROPATHY ALCOHOLIC
     Dosage: 600 MG, TID
     Route: 048
  13. PRAMIPEXOLE DIHYDROCHLORIDE [Concomitant]
     Indication: POLYNEUROPATHY ALCOHOLIC
     Dosage: 0.18 MG, QD
     Route: 048

REACTIONS (1)
  - DEHYDRATION [None]
